FAERS Safety Report 25191562 (Version 1)
Quarter: 2025Q2

REPORT INFORMATION
  Report Type: Spontaneous
  Country: US (occurrence: None)
  Receive Date: 20250411
  Receipt Date: 20250411
  Transmission Date: 20250717
  Serious: Yes (unspecified)
  Sender: FDA-CTU
  Company Number: None

PATIENT
  Age: 63 Year
  Sex: Female
  Weight: 131.85 kg

DRUGS (5)
  1. RITUXIMAB [Suspect]
     Active Substance: RITUXIMAB
     Indication: Rheumatoid arthritis
     Dates: start: 20250410, end: 20250410
  2. OLMESARTAN [Concomitant]
     Active Substance: OLMESARTAN
  3. ZYRTEC [Concomitant]
     Active Substance: CETIRIZINE HYDROCHLORIDE
  4. Advir 500 [Concomitant]
  5. ALBUTEROL [Concomitant]
     Active Substance: ALBUTEROL

REACTIONS (22)
  - Infusion related reaction [None]
  - Swollen tongue [None]
  - Lip swelling [None]
  - Throat irritation [None]
  - Dyspnoea [None]
  - Therapy interrupted [None]
  - Formication [None]
  - Pyrexia [None]
  - Eye pruritus [None]
  - Urticaria [None]
  - Headache [None]
  - Skin exfoliation [None]
  - Hallucination, visual [None]
  - Therapy cessation [None]
  - Lethargy [None]
  - Facial pain [None]
  - Eye swelling [None]
  - Gastrointestinal disorder [None]
  - Eye pain [None]
  - Pain in jaw [None]
  - Peripheral swelling [None]
  - Restless legs syndrome [None]

NARRATIVE: CASE EVENT DATE: 20250410
